FAERS Safety Report 4302929-1 (Version None)
Quarter: 2004Q1

REPORT INFORMATION
  Report Type: 
  Country: None (occurrence: None)
  Receive Date: 20040223
  Receipt Date: 20040223
  Transmission Date: 20041129
  Serious: Yes (Hospitalization)
  Sender: FDA-Public Use
  Company Number: None

PATIENT
  Age: 76 Year
  Sex: Male
  Weight: 82 kg

DRUGS (12)
  1. AMIODARONE HCL [Suspect]
     Indication: VENTRICULAR ARRHYTHMIA
     Dosage: 600 MG DAILY ORAL
     Route: 048
     Dates: start: 20030710, end: 20030717
  2. ASPIRIN [Concomitant]
  3. DIGOXIN [Concomitant]
  4. FOSINOPRIL SODIUM [Concomitant]
  5. FUROSEMIDE [Concomitant]
  6. MULTI-VITAMIN [Concomitant]
  7. QUETIAPINE [Concomitant]
  8. SPIRONOLACTONE [Concomitant]
  9. VITAMIN E [Concomitant]
  10. TERAZOCIN [Concomitant]
  11. SERTRALINE HCL [Concomitant]
  12. RANITIDINE [Concomitant]

REACTIONS (4)
  - ASTHENIA [None]
  - BLOOD PRESSURE IMMEASURABLE [None]
  - DEPRESSED LEVEL OF CONSCIOUSNESS [None]
  - URINARY TRACT INFECTION [None]
